FAERS Safety Report 21362635 (Version 2)
Quarter: 2022Q3

REPORT INFORMATION
  Report Type: Report from Study
  Country: US (occurrence: US)
  Receive Date: 20220922
  Receipt Date: 20220928
  Transmission Date: 20221027
  Serious: Yes (Other)
  Sender: FDA-Public Use
  Company Number: US-ABBVIE-4128531

PATIENT
  Sex: Female

DRUGS (1)
  1. HUMIRA [Suspect]
     Active Substance: ADALIMUMAB
     Indication: Arthritis
     Route: 058

REACTIONS (6)
  - Colon cancer [Unknown]
  - Device issue [Not Recovered/Not Resolved]
  - Nervousness [Unknown]
  - Colitis ulcerative [Unknown]
  - Off label use [Unknown]
  - Tremor [Unknown]
